FAERS Safety Report 4974621-1 (Version None)
Quarter: 2006Q1

REPORT INFORMATION
  Report Type: 
  Country: None (occurrence: None)
  Receive Date: 20060216
  Receipt Date: 20051129
  Transmission Date: 20060701
  Serious: Yes (Other)
  Sender: FDA-Public Use
  Company Number: PHEH2005US09844

PATIENT
  Age: 22 Year
  Sex: Female

DRUGS (4)
  1. GLEEVEC [Suspect]
     Indication: CHRONIC MYELOID LEUKAEMIA
     Dosage: 400 MG, QD, ORAL
     Route: 048
     Dates: start: 20040301
  2. ALLOPURINOL [Concomitant]
  3. FERROUS SULFATE TAB [Concomitant]
  4. QUININE SULFATE [Concomitant]

REACTIONS (6)
  - DIZZINESS EXERTIONAL [None]
  - NAUSEA [None]
  - PALPITATIONS [None]
  - SYNCOPE [None]
  - TACHYCARDIA [None]
  - VOMITING [None]
